FAERS Safety Report 6166165-9 (Version None)
Quarter: 2009Q2

REPORT INFORMATION
  Report Type: 
  Country: None (occurrence: None)
  Receive Date: 20090422
  Receipt Date: 20090422
  Transmission Date: 20091009
  Serious: Yes (Other)
  Sender: FDA-Public Use
  Company Number: None

PATIENT
  Age: 63 Year
  Sex: Female
  Weight: 62.5964 kg

DRUGS (1)
  1. BONIVA [Suspect]
     Indication: OSTEOPOROSIS
     Dosage: 150MG 1X MONTH ORAL
     Route: 048
     Dates: start: 20090408

REACTIONS (10)
  - ABDOMINAL PAIN UPPER [None]
  - BEDRIDDEN [None]
  - BONE PAIN [None]
  - DIARRHOEA [None]
  - DYSPEPSIA [None]
  - FATIGUE [None]
  - FEAR [None]
  - GASTROINTESTINAL PAIN [None]
  - HEAD INJURY [None]
  - INFLUENZA LIKE ILLNESS [None]
